FAERS Safety Report 10777234 (Version 1)
Quarter: 2015Q1

REPORT INFORMATION
  Report Type: Other
  Country: US (occurrence: US)
  Receive Date: 20150209
  Receipt Date: 20150209
  Transmission Date: 20150721
  Serious: Yes (Death)
  Sender: FDA-Public Use
  Company Number: US-FRI-1000074384

PATIENT
  Age: 42 Year
  Sex: Female

DRUGS (10)
  1. DOXYLAMINE [Suspect]
     Active Substance: DOXYLAMINE
  2. FENTANYL. [Suspect]
     Active Substance: FENTANYL
  3. ISOPROPANOL [Suspect]
     Active Substance: ISOPROPANOLAMINE
  4. BUSPIRONE [Suspect]
     Active Substance: BUSPIRONE HYDROCHLORIDE
  5. QUETIAPINE [Suspect]
     Active Substance: QUETIAPINE
  6. ACETAMINOPHEN. [Suspect]
     Active Substance: ACETAMINOPHEN
  7. CITALOPRAM [Suspect]
     Active Substance: CITALOPRAM HYDROBROMIDE
  8. DEXTROMETHORPHAN [Suspect]
     Active Substance: DEXTROMETHORPHAN
  9. DIPHENHYDRAMINE [Suspect]
     Active Substance: DIPHENHYDRAMINE
  10. DOXEPIN [Suspect]
     Active Substance: DOXEPIN

REACTIONS (1)
  - Drug abuse [Fatal]
